FAERS Safety Report 25422891 (Version 1)
Quarter: 2025Q2

REPORT INFORMATION
  Report Type: Spontaneous
  Country: FR (occurrence: FR)
  Receive Date: 20250611
  Receipt Date: 20250611
  Transmission Date: 20250717
  Serious: Yes (Death, Hospitalization, Other)
  Sender: Norvium Bioscience
  Company Number: FR-Norvium Bioscience LLC-080239

PATIENT
  Age: 67 Year
  Sex: Male

DRUGS (2)
  1. METFORMIN HYDROCHLORIDE [Suspect]
     Active Substance: METFORMIN HYDROCHLORIDE
     Indication: Type 2 diabetes mellitus
     Route: 048
  2. BIKTARVY [Suspect]
     Active Substance: BICTEGRAVIR SODIUM\EMTRICITABINE\TENOFOVIR ALAFENAMIDE FUMARATE
     Indication: HIV infection
     Route: 048

REACTIONS (9)
  - Lactic acidosis [Fatal]
  - Hyperglycaemia [Unknown]
  - Hyperkalaemia [Unknown]
  - Anaemia [Unknown]
  - Prothrombin time shortened [Unknown]
  - Poisoning deliberate [Unknown]
  - Toxicity to various agents [Unknown]
  - Hepatic failure [Unknown]
  - Overdose [Unknown]
